FAERS Safety Report 5467121-6 (Version None)
Quarter: 2007Q3

REPORT INFORMATION
  Report Type: 
  Country: None (occurrence: None)
  Receive Date: 20070921
  Receipt Date: 20070921
  Transmission Date: 20080115
  Serious: Yes (Life-Threatening, Other)
  Sender: FDA-Public Use
  Company Number: None

PATIENT
  Sex: Female
  Weight: 62.5964 kg

DRUGS (1)
  1. CHANTIX [Suspect]
     Indication: SMOKING CESSATION THERAPY
     Dosage: 1 MG 2 X A DAY UNK
     Dates: start: 20070903, end: 20070916

REACTIONS (6)
  - ABNORMAL DREAMS [None]
  - CONSTIPATION [None]
  - DELUSION [None]
  - DEPRESSION [None]
  - SUICIDAL IDEATION [None]
  - ULCER [None]
